FAERS Safety Report 10853752 (Version 1)
Quarter: 2015Q1

REPORT INFORMATION
  Report Type: Spontaneous
  Country: US (occurrence: None)
  Receive Date: 20150218
  Receipt Date: 20150218
  Transmission Date: 20150721
  Serious: Yes (Other)
  Sender: FDA-Public Use
  Company Number: None

PATIENT
  Age: 59 Year
  Sex: Female
  Weight: 44 kg

DRUGS (1)
  1. LEVOFLOXACIN. [Suspect]
     Active Substance: LEVOFLOXACIN
     Indication: URINARY TRACT INFECTION
     Dosage: 7
     Route: 048
     Dates: start: 20150123, end: 20150129

REACTIONS (4)
  - Tendon discomfort [None]
  - Oedema peripheral [None]
  - Gait disturbance [None]
  - Sensory disturbance [None]

NARRATIVE: CASE EVENT DATE: 20150125
